FAERS Safety Report 8132824-1 (Version None)
Quarter: 2012Q1

REPORT INFORMATION
  Report Type: 
  Country: None (occurrence: None)
  Receive Date: 20120213
  Receipt Date: 20120203
  Transmission Date: 20120608
  Serious: No
  Sender: FDA-Public Use
  Company Number: US-JNJFOC-20120204210

PATIENT
  Age: 45 Year
  Sex: Female
  Weight: 70.31 kg

DRUGS (8)
  1. CLOZARIL [Concomitant]
     Indication: SCHIZOPHRENIA
     Route: 048
  2. VISTARIL [Concomitant]
     Indication: ANXIETY
     Route: 048
     Dates: start: 20120101
  3. CELEXA [Concomitant]
     Indication: DEPRESSION
     Route: 048
     Dates: start: 20111201
  4. CLONIDINE [Concomitant]
     Indication: HYPERTENSION
     Route: 048
     Dates: start: 20120101
  5. TRILEPTAL [Concomitant]
     Indication: BIPOLAR DISORDER
     Route: 048
     Dates: start: 20120101
  6. SYNTHROID [Concomitant]
     Route: 048
  7. INVEGA SUSTENNA [Suspect]
     Indication: SCHIZOPHRENIA
     Route: 030
     Dates: start: 20110129
  8. INVEGA SUSTENNA [Suspect]
     Route: 030
     Dates: start: 20111220

REACTIONS (2)
  - OVERDOSE [None]
  - INAPPROPRIATE SCHEDULE OF DRUG ADMINISTRATION [None]
